FAERS Safety Report 11057190 (Version 1)
Quarter: 2015Q2

REPORT INFORMATION
  Report Type: Spontaneous
  Country: IT (occurrence: IT)
  Receive Date: 20150422
  Receipt Date: 20150422
  Transmission Date: 20150821
  Serious: Yes (Death, Life-Threatening)
  Sender: FDA-Public Use
  Company Number: IT-SA-2015SA050623

PATIENT
  Age: 80 Year
  Sex: Female

DRUGS (6)
  1. ENAPREN [Concomitant]
     Active Substance: ENALAPRIL MALEATE
     Dosage: 5 MG
  2. CLEXANE T [Suspect]
     Active Substance: ENOXAPARIN SODIUM
     Indication: PULMONARY INFARCTION
     Route: 058
     Dates: start: 20130207, end: 20130215
  3. FERLIXIT [Concomitant]
     Active Substance: SODIUM FERRIC GLUCONATE COMPLEX
     Dosage: ^62.5 MG/5 ML SOLUTION FOR ORAL USE AND INTRAVENOUS USE
  4. LANOXIN [Concomitant]
     Active Substance: DIGOXIN
     Dosage: 0.125 MG
  5. LASIX [Concomitant]
     Active Substance: FUROSEMIDE
     Dosage: 25 MG
  6. CLEXANE T [Suspect]
     Active Substance: ENOXAPARIN SODIUM
     Indication: PULMONARY EMBOLISM
     Route: 058
     Dates: start: 20130207, end: 20130215

REACTIONS (5)
  - Hypotension [Unknown]
  - Anaemia [Fatal]
  - Abdominal wall haematoma [Fatal]
  - Tachypnoea [Unknown]
  - Injection site swelling [Unknown]

NARRATIVE: CASE EVENT DATE: 20130213
